FAERS Safety Report 6329157-2 (Version None)
Quarter: 2009Q3

REPORT INFORMATION
  Report Type: 
  Country: None (occurrence: None)
  Receive Date: 20090826
  Receipt Date: 20090820
  Transmission Date: 20100115
  Serious: Yes (Life-Threatening, Hospitalization, Other)
  Sender: FDA-Public Use
  Company Number: US-ROXANE LABORATORIES, INC.-2009-RO-00853RO

PATIENT
  Age: 56 Year
  Sex: Male

DRUGS (6)
  1. METHADONE [Suspect]
     Route: 048
  2. METHADONE [Suspect]
     Dosage: 80 MG
     Route: 048
  3. CIPROFLOXACIN [Suspect]
     Indication: UPPER RESPIRATORY TRACT INFECTION
     Dosage: 800 MG
  4. POTASSIUM CHLORIDE [Concomitant]
     Indication: SINUS BRADYCARDIA
  5. MAGNESIUM [Concomitant]
     Indication: SINUS BRADYCARDIA
  6. BUPRENORPHINE HCL [Concomitant]

REACTIONS (6)
  - DRUG DEPENDENCE [None]
  - DRUG INTERACTION [None]
  - HYPOKALAEMIA [None]
  - LONG QT SYNDROME [None]
  - SINUS BRADYCARDIA [None]
  - TORSADE DE POINTES [None]
